FAERS Safety Report 9163189 (Version 1)
Quarter: 2013Q1

REPORT INFORMATION
  Report Type: Spontaneous
  Country: US (occurrence: None)
  Receive Date: 20130313
  Receipt Date: 20130313
  Transmission Date: 20140127
  Serious: No
  Sender: FDA-Public Use
  Company Number: None

PATIENT
  Age: 37 Year
  Sex: Female
  Weight: 50 kg

DRUGS (1)
  1. NELARABINE [Suspect]
     Indication: T-CELL LYMPHOMA
     Dosage: 1.5 G/M2 DAYS 1, 3, 5 IV?ONE CYCLE 12-22-2012
     Route: 042
     Dates: start: 20121222

REACTIONS (1)
  - Peripheral sensorimotor neuropathy [None]
